FAERS Safety Report 8379884-0 (Version None)
Quarter: 2012Q2

REPORT INFORMATION
  Report Type: 
  Country: None (occurrence: None)
  Receive Date: 20120523
  Receipt Date: 20120515
  Transmission Date: 20120825
  Serious: Yes (Death, Hospitalization)
  Sender: FDA-Public Use
  Company Number: CH-PFIZER INC-2012122321

PATIENT
  Age: 68 Year
  Sex: Female

DRUGS (4)
  1. CORDARONE [Suspect]
     Indication: ARRHYTHMIA
     Dosage: 200 MG ONCE DAILY
     Route: 048
     Dates: end: 20120101
  2. CRESTOR [Suspect]
     Indication: HYPERLIPIDAEMIA
     Dosage: 10 MG ONCE DAILY
     Route: 048
     Dates: end: 20120101
  3. METHYLPREDNISOLONE [Suspect]
     Indication: INTERSTITIAL LUNG DISEASE
     Dosage: UNK
     Route: 041
     Dates: start: 20120320, end: 20120415
  4. CRESTOR [Suspect]
     Indication: CORONARY ARTERY DISEASE

REACTIONS (3)
  - MYOPATHY [None]
  - INTERSTITIAL LUNG DISEASE [None]
  - ACUTE RESPIRATORY DISTRESS SYNDROME [None]
